FAERS Safety Report 9236155 (Version 2)
Quarter: 2013Q3

REPORT INFORMATION
  Report Type: Spontaneous
  Country: CN (occurrence: CN)
  Receive Date: 20130417
  Receipt Date: 20130719
  Transmission Date: 20140515
  Serious: Yes (Hospitalization)
  Sender: FDA-Public Use
  Company Number: CN-GENZYME-CERZ-1002895

PATIENT
  Age: 44 Year
  Sex: Male
  Weight: 60 kg

DRUGS (3)
  1. CEREZYME [Suspect]
     Indication: GAUCHER^S DISEASE
     Dosage: UNK
     Route: 042
     Dates: start: 200909
  2. CEREZYME [Suspect]
     Dosage: 20 U/KG, UNK
     Route: 042
     Dates: start: 20121029
  3. CEREZYME [Suspect]
     Dosage: 13.3 U/KG, UNK
     Route: 042
     Dates: end: 20130120

REACTIONS (3)
  - Epilepsy [Not Recovered/Not Resolved]
  - Bone pain [Not Recovered/Not Resolved]
  - Hypoxia [Recovered/Resolved]
